FAERS Safety Report 6677315-X (Version None)
Quarter: 2010Q2

REPORT INFORMATION
  Report Type: 
  Country: None (occurrence: None)
  Receive Date: 20100408
  Receipt Date: 20100408
  Transmission Date: 20101027
  Serious: No
  Sender: FDA-Public Use
  Company Number: None

PATIENT
  Age: 15 Year
  Sex: Female
  Weight: 49.4421 kg

DRUGS (6)
  1. REMICADE [Suspect]
     Indication: COLITIS ULCERATIVE
     Dosage: 250 MG IV
     Route: 042
  2. REMICADE [Suspect]
     Indication: INFLAMMATORY BOWEL DISEASE
     Dosage: 250 MG IV
     Route: 042
  3. ASACOL [Concomitant]
  4. TYLENOL-500 [Concomitant]
  5. BENADRYL [Concomitant]
  6. SOLU-MEDROL [Concomitant]

REACTIONS (3)
  - COUGH [None]
  - GENERALISED ERYTHEMA [None]
  - INFUSION RELATED REACTION [None]
